FAERS Safety Report 10710406 (Version 3)
Quarter: 2015Q1

REPORT INFORMATION
  Report Type: Spontaneous
  Country: ES (occurrence: ES)
  Receive Date: 20150114
  Receipt Date: 20150313
  Transmission Date: 20150721
  Serious: Yes (Hospitalization, Other)
  Sender: FDA-Public Use
  Company Number: ES-009507513-1501ESP001211

PATIENT
  Age: 56 Year
  Sex: Male

DRUGS (11)
  1. RIBAVIRIN. [Interacting]
     Active Substance: RIBAVIRIN
     Dosage: 800 MG DAILY, WEEK 13 OF TREATMENT
     Route: 048
  2. RIBAVIRIN. [Interacting]
     Active Substance: RIBAVIRIN
     Dosage: 600 MG DAILY
     Route: 048
  3. PEGASYS [Suspect]
     Active Substance: PEGINTERFERON ALFA-2A
     Dosage: 90 MICROGRAM, QW
  4. THERAPY UNSPECIFIED [Suspect]
     Active Substance: UNSPECIFIED INGREDIENT
  5. RIBAVIRIN. [Interacting]
     Active Substance: RIBAVIRIN
     Dosage: 400 MG DAILY
     Route: 048
  6. TELAPREVIR [Interacting]
     Active Substance: TELAPREVIR
     Dosage: 750 MG, Q8H
  7. RIBAVIRIN. [Interacting]
     Active Substance: RIBAVIRIN
     Indication: CHRONIC HEPATITIS C
     Dosage: 1000 MG DAILY
     Route: 048
  8. PEGASYS [Suspect]
     Active Substance: PEGINTERFERON ALFA-2A
     Indication: CHRONIC HEPATITIS C
     Dosage: 180 MICROGRAM, QW
  9. TELAPREVIR [Interacting]
     Active Substance: TELAPREVIR
     Indication: CHRONIC HEPATITIS C
     Dosage: 750 MG, Q8H
  10. PEGASYS [Suspect]
     Active Substance: PEGINTERFERON ALFA-2A
     Dosage: 135 MICROGRAM, QW, WEEK 13 OF TREATMENT
  11. PEGASYS [Suspect]
     Active Substance: PEGINTERFERON ALFA-2A
     Dosage: 135 MICROGRAM, QW

REACTIONS (1)
  - Aplasia pure red cell [Recovering/Resolving]
